FAERS Safety Report 7213019-2 (Version None)
Quarter: 2011Q1

REPORT INFORMATION
  Report Type: 
  Country: None (occurrence: None)
  Receive Date: 20110106
  Receipt Date: 20110105
  Transmission Date: 20110831
  Serious: Yes (Hospitalization)
  Sender: FDA-Public Use
  Company Number: B0601606A

PATIENT
  Sex: Female
  Weight: 71 kg

DRUGS (16)
  1. BEFIZAL [Concomitant]
     Dosage: 400MG PER DAY
     Route: 048
  2. DAFALGAN [Concomitant]
     Dosage: 4G PER DAY
     Route: 048
  3. AERIUS [Concomitant]
     Dosage: 5MG PER DAY
     Route: 048
  4. THALIDOMIDE [Suspect]
     Indication: MULTIPLE MYELOMA
     Dosage: 200MG PER DAY
     Route: 048
     Dates: start: 20090924
  5. UNKNOWN DRUG [Concomitant]
     Indication: HYPERTENSION
     Route: 048
  6. PACKED RED CELLS [Concomitant]
     Route: 042
  7. TIORFAN [Concomitant]
  8. ALKERAN [Suspect]
     Indication: MULTIPLE MYELOMA
     Dosage: 18MG PER DAY
     Dates: start: 20090924
  9. ABUFENE [Concomitant]
     Dosage: 800MG TWICE PER DAY
     Route: 048
  10. NEXIUM [Concomitant]
     Indication: GLAUCOMA
     Dosage: 20MG PER DAY
     Route: 048
  11. CIPROFLOXACIN HYDROCHLORIDE [Concomitant]
  12. ULTRA-LEVURE [Concomitant]
  13. PREDNISONE [Suspect]
     Indication: MULTIPLE MYELOMA
     Dosage: 140MG PER DAY
     Dates: start: 20090924
  14. ARIXTRA [Concomitant]
     Indication: THROMBOSIS
     Dosage: 7.5MG PER DAY
     Route: 048
  15. OXYCONTIN [Concomitant]
     Indication: BONE PAIN
     Dosage: 20MG PER DAY
     Route: 048
     Dates: start: 20090602
  16. OXYNORM [Concomitant]
     Dosage: 10MG PER DAY

REACTIONS (11)
  - DIARRHOEA [None]
  - NEUTROPENIA [None]
  - DEHYDRATION [None]
  - ABDOMINAL PAIN [None]
  - ASTHENIA [None]
  - DYSPEPSIA [None]
  - VOMITING [None]
  - RESPIRATORY DISORDER [None]
  - WEIGHT DECREASED [None]
  - NAUSEA [None]
  - ANAEMIA [None]
